FAERS Safety Report 6816203-2 (Version None)
Quarter: 2010Q3

REPORT INFORMATION
  Report Type: 
  Country: None (occurrence: None)
  Receive Date: 20100705
  Receipt Date: 20100630
  Transmission Date: 20110219
  Serious: Yes (Life-Threatening)
  Sender: FDA-Public Use
  Company Number: DE-BRISTOL-MYERS SQUIBB COMPANY-15145824

PATIENT
  Age: 48 Year
  Sex: Female
  Weight: 52 kg

DRUGS (14)
  1. CETUXIMAB [Suspect]
     Indication: HEAD AND NECK CANCER
     Dosage: STRENGTH 5MG/ML NO OF INFUSION=1 TEMPORARILY DISCONTINUED ON 4JUN10
     Route: 042
     Dates: start: 20100528, end: 20100528
  2. CISPLATIN [Suspect]
     Indication: HEAD AND NECK CANCER
     Dosage: NO OF INFUSION=1 TEMPORARILY DISCONTINUED ON 10JUN10
     Route: 042
     Dates: start: 20100528
  3. CILENGITIDE [Suspect]
     Indication: HEAD AND NECK CANCER
     Dosage: NO OF INFUSION=2 TEMPORARILY DISCONTINUED ON 4JUN10
     Route: 042
     Dates: start: 20100528, end: 20100531
  4. FLUOROURACIL [Suspect]
     Indication: HEAD AND NECK CANCER
     Dosage: NO OF INFUSION=1; 28MAY2010-01JUN2010 TEMPORARILY DISCONTINUED ON 10JUN10 DAY1 TO DAY4 OF CYCLE
     Route: 042
     Dates: start: 20100528
  5. CLEXANE [Concomitant]
     Route: 058
  6. PANTOZOL [Concomitant]
  7. CALCIUM-SANDOZ [Concomitant]
     Dosage: DF=TABS
     Dates: end: 20100608
  8. MAGNESIUM [Concomitant]
     Dosage: STOPPED ON 8JUN10,RESTARTED ON 10JUN10
     Dates: end: 20100610
  9. CLARITHROMYCIN [Concomitant]
     Indication: PROPHYLAXIS
     Dates: start: 20100608, end: 20100610
  10. CEFTRIAXONE [Concomitant]
     Indication: PROPHYLAXIS
     Route: 042
     Dates: start: 20100607, end: 20100608
  11. BETABION [Concomitant]
  12. GLUCOSE + ELECTROLYTES [Concomitant]
     Dosage: GLUCOSE 5%+KCL+MG+CA
     Route: 042
     Dates: start: 20100609, end: 20100609
  13. ELECTROLYTE SOLUTION [Concomitant]
     Dosage: ELECTROLYTE SOLUTIONS=NACL+KCL+MG+CA
     Route: 042
     Dates: start: 20100608, end: 20100608
  14. SAMSCA [Concomitant]
     Dates: start: 20100608, end: 20100608

REACTIONS (1)
  - HYPOXIA [None]
